FAERS Safety Report 5739687-X (Version None)
Quarter: 2008Q2

REPORT INFORMATION
  Report Type: 
  Country: None (occurrence: None)
  Receive Date: 20080513
  Receipt Date: 20080428
  Transmission Date: 20081010
  Serious: Yes (Hospitalization)
  Sender: FDA-Public Use
  Company Number: 100#08#2008-02483

PATIENT
  Age: 39 Year
  Sex: Female

DRUGS (15)
  1. LITHIUM CARBONATE [Suspect]
     Indication: AGITATION
     Dosage: 1.7 GM
  2. LITHIUM CARBONATE [Suspect]
     Indication: BIPOLAR DISORDER
     Dosage: 1.7 GM
  3. LITHIUM CARBONATE [Suspect]
     Indication: POOR QUALITY SLEEP
     Dosage: 1.7 GM
  4. OLANZAPINE [Suspect]
     Indication: DRUG USE FOR UNKNOWN INDICATION
     Dosage: 20 MG AT NIGHT
  5. CLONAZEPAM [Suspect]
     Indication: DRUG USE FOR UNKNOWN INDICATION
     Dosage: 0.5 MG AT NIGHT ORAL
     Route: 048
  6. RANITIDINE [Suspect]
     Indication: PREMEDICATION
     Dosage: 50 MG INTRAVENOUS
     Route: 042
  7. METOCLOPRAMIDE [Suspect]
     Indication: PREMEDICATION
     Dosage: 10 MG INTRAVENOUS
     Route: 042
  8. FOLIC ACID [Suspect]
     Indication: DRUG USE FOR UNKNOWN INDICATION
     Dosage: 500 MCG
  9. LACTULOSE [Suspect]
     Indication: DRUG USE FOR UNKNOWN INDICATION
  10. SODIUM CITRATE [Suspect]
     Indication: PREMEDICATION
     Dosage: 30 ML ORAL
     Route: 048
  11. SUXAMETHONIUM (SUXAMETHONIUM) [Suspect]
     Indication: ILL-DEFINED DISORDER
     Dosage: 100 MG
  12. THIOPENTONE (THIOPENTONE) [Suspect]
     Indication: ILL-DEFINED DISORDER
     Dosage: 250 MG
  13. ISOFLURANE [Suspect]
     Indication: MAINTENANCE OF ANAESTHESIA
  14. HARTMANN`S SOLUTION (HARTMANN`S SOLUTION) [Suspect]
     Indication: DRUG USE FOR UNKNOWN INDICATION
     Dosage: 1 L
  15. FENTANYL [Suspect]
     Dosage: INFUSION

REACTIONS (20)
  - AGITATION [None]
  - ANAEMIA OF PREGNANCY [None]
  - ANAESTHETIC COMPLICATION [None]
  - ANTIPSYCHOTIC DRUG LEVEL ABOVE THERAPEUTIC [None]
  - BLOOD CREATININE DECREASED [None]
  - CAESAREAN SECTION [None]
  - CONFUSIONAL STATE [None]
  - COUGH [None]
  - DELAYED RECOVERY FROM ANAESTHESIA [None]
  - DISORIENTATION [None]
  - DRUG EXPOSURE DURING PREGNANCY [None]
  - HAEMODIALYSIS [None]
  - HYDRONEPHROSIS [None]
  - PLATELET COUNT DECREASED [None]
  - POST PROCEDURAL COMPLICATION [None]
  - RENAL IMPAIRMENT [None]
  - RESTLESSNESS [None]
  - THERAPEUTIC AGENT TOXICITY [None]
  - TWIN PREGNANCY [None]
  - URINOMA [None]
